FAERS Safety Report 13021575 (Version 1)
Quarter: 2016Q4

REPORT INFORMATION
  Report Type: Spontaneous
  Country: FR (occurrence: FR)
  Receive Date: 20161213
  Receipt Date: 20161213
  Transmission Date: 20170207
  Serious: Yes (Hospitalization)
  Sender: FDA-Public Use
  Company Number: FR-ROCHE-1866047

PATIENT
  Age: 53 Year
  Sex: Male

DRUGS (14)
  1. LOXAPAC [Suspect]
     Active Substance: LOXAPINE SUCCINATE
     Indication: DELIRIUM TREMENS
  2. LEVEMIR [Concomitant]
     Active Substance: INSULIN DETEMIR
     Dosage: EVENING
     Route: 065
  3. NOVORAPID [Concomitant]
     Active Substance: INSULIN ASPART
     Dosage: 12 IU MORNING, 16 IU NOON AND 16 IU EVENING
     Route: 065
  4. DIFFU K [Concomitant]
     Active Substance: POTASSIUM CHLORIDE
  5. BECILAN [Concomitant]
     Active Substance: PYRIDOXINE
     Route: 065
  6. NICOBION [Concomitant]
     Active Substance: NIACINAMIDE
     Route: 065
  7. MACROGOL [Concomitant]
     Active Substance: POLYETHYLENE GLYCOLS
     Indication: CONSTIPATION
     Dosage: 1/DAY
     Route: 065
  8. VALIUM [Suspect]
     Active Substance: DIAZEPAM
     Indication: DELIRIUM TREMENS
  9. LOXAPAC [Suspect]
     Active Substance: LOXAPINE SUCCINATE
     Indication: CONFUSIONAL STATE
     Route: 042
     Dates: start: 20161116, end: 20161116
  10. FORTIMEL EXTRA [Concomitant]
  11. LANSOPRAZOLE. [Concomitant]
     Active Substance: LANSOPRAZOLE
     Route: 065
  12. PROPRANOLOL [Concomitant]
     Active Substance: PROPRANOLOL\PROPRANOLOL HYDROCHLORIDE
     Route: 065
  13. VALIUM [Suspect]
     Active Substance: DIAZEPAM
     Indication: CONFUSIONAL STATE
     Route: 042
     Dates: start: 20161116, end: 20161116
  14. BEVITINE [Concomitant]
     Active Substance: THIAMINE
     Route: 065

REACTIONS (1)
  - Coma [Recovered/Resolved]

NARRATIVE: CASE EVENT DATE: 20161117
